FAERS Safety Report 10576070 (Version 1)
Quarter: 2014Q4

REPORT INFORMATION
  Report Type: Spontaneous
  Country: US (occurrence: None)
  Receive Date: 20141110
  Receipt Date: 20141110
  Transmission Date: 20150529
  Serious: Yes (Disabling)
  Sender: FDA-Public Use
  Company Number: None

PATIENT
  Age: 49 Year
  Sex: Female
  Weight: 58.51 kg

DRUGS (1)
  1. PAROXETINE HCL [Suspect]
     Active Substance: PAROXETINE HYDROCHLORIDE
     Indication: PANIC DISORDER
     Route: 048

REACTIONS (5)
  - Dyspnoea [None]
  - Product quality issue [None]
  - Anxiety [None]
  - Discomfort [None]
  - Product substitution issue [None]

NARRATIVE: CASE EVENT DATE: 20140801
